FAERS Safety Report 9020347 (Version 1)
Quarter: 2013Q1

REPORT INFORMATION
  Report Type: Spontaneous
  Country: None (occurrence: US)
  Receive Date: 20130119
  Receipt Date: 20130119
  Transmission Date: 20140127
  Serious: No
  Sender: FDA-Public Use
  Company Number: US-ALLERGAN-1208543US

PATIENT
  Age: 69 None
  Sex: Female

DRUGS (12)
  1. BOTOX? [Suspect]
     Indication: MIGRAINE
     Dosage: CORRUGATOR10U/2S,PROCERUS5U/1S,FONT20U/4S,TEMP40U/8S,OCC30U/6S,CPARASPINE20U/4S,TRAP30U/6S
     Route: 030
     Dates: start: 20120604, end: 20120604
  2. ARMOUR THYROID [Concomitant]
     Indication: THYROID DISORDER
     Dosage: 90 MG, UNK
     Route: 048
  3. PREMARIN                           /00073001/ [Concomitant]
     Indication: PRODUCT USED FOR UNKNOWN INDICATION
     Dosage: 1.25 MG, QD
     Route: 048
  4. LISINOPRIL [Concomitant]
     Indication: PRODUCT USED FOR UNKNOWN INDICATION
     Dosage: 20 MG, UNK
     Route: 048
  5. NORCO [Concomitant]
     Indication: PAIN
     Dosage: 10-135 TAB MG / 1/2 TAB TID PRN
  6. FIORINAL WITH CODEINE [Concomitant]
     Indication: MIGRAINE
     Dosage: MULTIDONE CAPS Q4HRS PRN
  7. IBUPROFEN [Concomitant]
     Indication: PRODUCT USED FOR UNKNOWN INDICATION
     Dosage: 300 MG, QD
  8. RANITIDINE [Concomitant]
     Dosage: 150 MG, QD
  9. CARISOPRODOL [Concomitant]
     Dosage: 350 MG, UNK
  10. GLUCOSMINE PLUS VITAMIN D [Concomitant]
     Dosage: 1500 - 200MG, UNIT
  11. PHENERGAN                          /00033001/ [Concomitant]
     Indication: NAUSEA
     Dosage: 25 MG, UNK
  12. NEURONTIN [Concomitant]
     Dosage: 100 MG, QHS

REACTIONS (6)
  - Adverse event [Unknown]
  - Swelling face [Not Recovered/Not Resolved]
  - Migraine [Not Recovered/Not Resolved]
  - Neck pain [Not Recovered/Not Resolved]
  - Headache [Not Recovered/Not Resolved]
  - Drug ineffective [Unknown]
